FAERS Safety Report 5275873-3 (Version None)
Quarter: 2007Q1

REPORT INFORMATION
  Report Type: 
  Country: None (occurrence: None)
  Receive Date: 20061213
  Receipt Date: 20060508
  Transmission Date: 20070707
  Serious: No
  Sender: FDA-Public Use
  Company Number: 2006UW08816

PATIENT

DRUGS (4)
  1. SEROQUEL [Suspect]
     Dates: start: 20040101
  2. SEROQUEL [Suspect]
     Dates: end: 20060101
  3. SEROQUEL [Suspect]
     Dates: start: 20060401
  4. RISPERDAL [Suspect]
     Indication: HALLUCINATION, AUDITORY
     Dates: start: 20050101

REACTIONS (2)
  - BLOOD GLUCOSE INCREASED [None]
  - DIABETIC KETOACIDOSIS [None]
